FAERS Safety Report 25214468 (Version 1)
Quarter: 2025Q2

REPORT INFORMATION
  Report Type: Spontaneous
  Country: US (occurrence: None)
  Receive Date: 20250417
  Receipt Date: 20250417
  Transmission Date: 20250716
  Serious: No
  Sender: FDA-CTU
  Company Number: None

PATIENT
  Age: 37 Year
  Sex: Female
  Weight: 90.9 kg

DRUGS (5)
  1. PYRIDOXINE\SEMAGLUTIDE [Suspect]
     Active Substance: PYRIDOXINE\SEMAGLUTIDE
     Indication: Weight control
     Dates: start: 20241204
  2. LISINOPRIL [Concomitant]
     Active Substance: LISINOPRIL
  3. ZOLPIDEM TARTRATE [Concomitant]
     Active Substance: ZOLPIDEM TARTRATE
  4. WELLBUTRIN [Concomitant]
     Active Substance: BUPROPION HYDROCHLORIDE
  5. UNSPECIFIED INGREDIENT [Concomitant]
     Active Substance: UNSPECIFIED INGREDIENT

REACTIONS (4)
  - Haemorrhoids [None]
  - Haemorrhage [None]
  - Pain [None]
  - Treatment delayed [None]

NARRATIVE: CASE EVENT DATE: 20241204
